FAERS Safety Report 6804979-X (Version None)
Quarter: 2010Q2

REPORT INFORMATION
  Report Type: 
  Country: None (occurrence: None)
  Receive Date: 20100628
  Receipt Date: 20070716
  Transmission Date: 20101027
  Serious: No
  Sender: FDA-Public Use
  Company Number: US-PFIZER INC-2007064635

PATIENT
  Sex: Female

DRUGS (2)
  1. SYNAREL [Suspect]
     Indication: ENDOMETRIOSIS
     Dosage: FIRST CYCLE
     Dates: start: 19900101, end: 19900101
  2. SYNAREL [Suspect]
     Dosage: 2ND CYCLE
     Dates: start: 19920101, end: 19920101

REACTIONS (1)
  - HEADACHE [None]
